FAERS Safety Report 21596258 (Version 1)
Quarter: 2022Q4

REPORT INFORMATION
  Report Type: Spontaneous
  Country: IT (occurrence: IT)
  Receive Date: 20221115
  Receipt Date: 20221115
  Transmission Date: 20230113
  Serious: Yes (Life-Threatening, Hospitalization)
  Sender: FDA-Public Use
  Company Number: IT-MYLANLABS-2022M1126727

PATIENT
  Age: 49 Year
  Sex: Male

DRUGS (1)
  1. ACYCLOVIR [Suspect]
     Active Substance: ACYCLOVIR
     Indication: Herpes simplex
     Dosage: 800 MILLIGRAM, TID, STRENGTH: 10 MILLIGRAM PER KILOGRAM
     Route: 065

REACTIONS (1)
  - Drug ineffective [Unknown]
